FAERS Safety Report 9413570 (Version 1)
Quarter: 2013Q2

REPORT INFORMATION
  Report Type: Spontaneous
  Country: GB (occurrence: None)
  Receive Date: 20130627
  Receipt Date: 20130627
  Transmission Date: 20140414
  Serious: Yes (Disabling, Other)
  Sender: FDA-Public Use
  Company Number: ENTC2013-0216

PATIENT
  Age: 62 Year
  Sex: Female
  Weight: 80 kg

DRUGS (9)
  1. STALEVO (LEVODOPA, CARBIDOPA, ENTACAPONE) [Suspect]
     Indication: PARKINSON^S DISEASE
     Route: 048
     Dates: start: 2011
  2. DULOXETINE [Concomitant]
  3. OMEPRAZOLE [Concomitant]
  4. AMLODIPINE [Concomitant]
  5. CANDESARTAN [Concomitant]
  6. PRAMIPEXOLE [Concomitant]
  7. FYBOGEL [Concomitant]
  8. SIMVASTATIN [Concomitant]
  9. VITAMIN [Suspect]

REACTIONS (2)
  - On and off phenomenon [None]
  - Freezing phenomenon [None]
